FAERS Safety Report 16083634 (Version 6)
Quarter: 2019Q4

REPORT INFORMATION
  Report Type: Report from Study
  Country: DE (occurrence: DE)
  Receive Date: 20190318
  Receipt Date: 20191223
  Transmission Date: 20200122
  Serious: Yes (Hospitalization)
  Sender: FDA-Public Use
  Company Number: DE-ROCHE-2269918

PATIENT
  Sex: Female

DRUGS (5)
  1. OCREVUS [Suspect]
     Active Substance: OCRELIZUMAB
     Indication: PRIMARY PROGRESSIVE MULTIPLE SCLEROSIS
     Route: 042
     Dates: start: 20190215
  2. DEKRISTOL [Concomitant]
     Active Substance: CHOLECALCIFEROL
     Route: 065
  3. OCREVUS [Suspect]
     Active Substance: OCRELIZUMAB
     Route: 042
     Dates: start: 20190301
  4. MAXIM [DIENOGEST;ETHINYLESTRADIOL] [Concomitant]
     Active Substance: DIENOGEST\ETHINYL ESTRADIOL
  5. IBUPROFEN. [Concomitant]
     Active Substance: IBUPROFEN
     Dosage: AS REQUIRED
     Route: 065

REACTIONS (15)
  - Nausea [Recovered/Resolved]
  - Tremor [Not Recovered/Not Resolved]
  - Vomiting [Recovered/Resolved]
  - Body temperature increased [Recovered/Resolved]
  - Chills [Recovered/Resolved]
  - Multiple sclerosis relapse [Recovered/Resolved]
  - Headache [Recovered/Resolved]
  - Coordination abnormal [Recovering/Resolving]
  - Fatigue [Recovered/Resolved]
  - Pustule [Recovered/Resolved]
  - Dizziness [Recovered/Resolved]
  - Pain in extremity [Recovered/Resolved]
  - Nasopharyngitis [Recovered/Resolved]
  - Eczema [Recovered/Resolved]
  - Acne [Recovered/Resolved]

NARRATIVE: CASE EVENT DATE: 20190218
